FAERS Safety Report 22139051 (Version 2)
Quarter: 2023Q2

REPORT INFORMATION
  Report Type: Spontaneous
  Country: US (occurrence: US)
  Receive Date: 20230327
  Receipt Date: 20230407
  Transmission Date: 20230722
  Serious: Yes (Hospitalization, Other)
  Sender: FDA-Public Use
  Company Number: US-ALKEM LABORATORIES LIMITED-US-ALKEM-2023-03256

PATIENT
  Age: 19 Year
  Sex: Female

DRUGS (2)
  1. COLCHICINE [Interacting]
     Active Substance: COLCHICINE
     Indication: Urticaria chronic
     Dosage: 0.6 MILLIGRAM, TID (Q8H)
     Route: 065
  2. ERYTHROMYCIN [Interacting]
     Active Substance: ERYTHROMYCIN
     Indication: Impaired gastric emptying
     Dosage: 300 MILLIGRAM, QID (Q6H ADDED TWO WEEKS PRIOR))
     Route: 065

REACTIONS (6)
  - Toxicity to various agents [Recovered/Resolved]
  - Drug level increased [Recovered/Resolved]
  - Pyrexia [Recovered/Resolved]
  - Bone marrow failure [Recovered/Resolved]
  - Posterior reversible encephalopathy syndrome [Recovered/Resolved]
  - Drug interaction [Recovered/Resolved]
